FAERS Safety Report 11597341 (Version 1)
Quarter: 2015Q3

REPORT INFORMATION
  Report Type: Spontaneous
  Country: US (occurrence: US)
  Receive Date: 20150916
  Receipt Date: 20150916
  Transmission Date: 20151125
  Serious: No
  Sender: FDA-Public Use
  Company Number: US-ELI_LILLY_AND_COMPANY-US200801006391

PATIENT
  Age: 81 Year
  Sex: Male

DRUGS (3)
  1. LASIX [Concomitant]
     Active Substance: FUROSEMIDE
  2. FORTEO [Suspect]
     Active Substance: TERIPARATIDE
     Dates: start: 20080122, end: 20080123
  3. POTASSIUM [Concomitant]
     Active Substance: POTASSIUM

REACTIONS (1)
  - Pruritus [Recovered/Resolved]

NARRATIVE: CASE EVENT DATE: 20080122
